FAERS Safety Report 6409554-7 (Version None)
Quarter: 2009Q4

REPORT INFORMATION
  Report Type: 
  Country: None (occurrence: None)
  Receive Date: 20091022
  Receipt Date: 20090922
  Transmission Date: 20100525
  Serious: No
  Sender: FDA-Public Use
  Company Number: US-BAYER-200933566NA

PATIENT
  Age: 49 Year
  Sex: Male

DRUGS (3)
  1. LEVITRA [Suspect]
     Indication: ERECTILE DYSFUNCTION
     Dosage: UNIT DOSE: 20 MG
     Dates: start: 20090801
  2. LEVITRA [Suspect]
     Dosage: UNIT DOSE: 20 MG
     Dates: start: 20090916, end: 20090918
  3. ZOVIRAX [Concomitant]

REACTIONS (4)
  - ERECTILE DYSFUNCTION [None]
  - FLUSHING [None]
  - HEADACHE [None]
  - RHINORRHOEA [None]
